FAERS Safety Report 9450935 (Version 3)
Quarter: 2013Q4

REPORT INFORMATION
  Report Type: Spontaneous
  Country: US (occurrence: US)
  Receive Date: 20130809
  Receipt Date: 20131029
  Transmission Date: 20140711
  Serious: Yes (Hospitalization, Other)
  Sender: FDA-Public Use
  Company Number: PHEH2013US016642

PATIENT
  Age: 88 Year
  Sex: Female

DRUGS (5)
  1. FAMCICLOVIR [Suspect]
     Indication: HERPES ZOSTER
     Dosage: 500 MG, UNK
     Route: 048
     Dates: start: 20130121, end: 20130128
  2. ACICLOVIR [Interacting]
     Dosage: UNK UKN, UNK
  3. LYRICA [Interacting]
     Indication: PAIN
     Dosage: 50 UKN, UNK
     Route: 048
     Dates: start: 20130128, end: 20130131
  4. NORCO [Interacting]
     Indication: HERPES ZOSTER
     Dosage: UNK UKN, UNK
  5. SERTRALINE HYDROCHLORIDE [Concomitant]
     Dosage: UNK UKN, UNK

REACTIONS (6)
  - Convulsion [Recovered/Resolved]
  - Faecal incontinence [Unknown]
  - Aura [Unknown]
  - Urinary incontinence [Unknown]
  - Headache [Unknown]
  - Drug interaction [Recovered/Resolved]
